FAERS Safety Report 23162834 (Version 1)
Quarter: 2023Q4

REPORT INFORMATION
  Report Type: Spontaneous
  Country: US (occurrence: US)
  Receive Date: 20231109
  Receipt Date: 20231109
  Transmission Date: 20240109
  Serious: Yes (Other)
  Sender: FDA-Public Use
  Company Number: US-BRISTOL-MYERS SQUIBB COMPANY-2023-158547

PATIENT
  Age: 71 Year
  Sex: Male
  Weight: 95.25 kg

DRUGS (9)
  1. REVLIMID [Suspect]
     Active Substance: LENALIDOMIDE
     Indication: Plasma cell myeloma
     Route: 048
     Dates: start: 20230703
  2. REVLIMID [Suspect]
     Active Substance: LENALIDOMIDE
     Dosage: DOSE : (1) CAPSULE;     FREQ : DAILY ^ON 7 DAYS AND OFF 7 DAYS^
     Route: 048
     Dates: start: 20231017
  3. DEXAMETHASONE [Concomitant]
     Active Substance: DEXAMETHASONE
     Indication: Product used for unknown indication
  4. SULFAMETHOXAZOLE\TRIMETHOPRIM [Concomitant]
     Active Substance: SULFAMETHOXAZOLE\TRIMETHOPRIM
     Indication: Product used for unknown indication
     Dosage: TWICE A WEEK ON WEDNESDAYS AND SATURDAYS
  5. ACYCLOVIR [Concomitant]
     Active Substance: ACYCLOVIR
     Indication: Product used for unknown indication
  6. LACTULOSE [Concomitant]
     Active Substance: LACTULOSE
     Indication: Constipation
  7. VITAMIN B COMPLEX [DEXPANTHENOL;NICOTINAMIDE;PYRIDOXINE HYDROCHLORIDE; [Concomitant]
     Indication: Product used for unknown indication
  8. VITAMIN C [Concomitant]
     Active Substance: ASCORBIC ACID
     Indication: Product used for unknown indication
  9. CHOLECALCIFEROL [Concomitant]
     Active Substance: CHOLECALCIFEROL
     Indication: Product used for unknown indication

REACTIONS (5)
  - Off label use [Unknown]
  - Neuropathy peripheral [Unknown]
  - Constipation [Recovering/Resolving]
  - Sleep disorder [Unknown]
  - Discomfort [Unknown]
